FAERS Safety Report 8897965 (Version 1)
Quarter: 2012Q4

REPORT INFORMATION
  Report Type: 
  Country: US (occurrence: US)
  Receive Date: 20121108
  Receipt Date: 20121108
  Transmission Date: 20130627
  Serious: No
  Sender: FDA-Public Use
  Company Number: US-AMGEN-USASP2012033006

PATIENT
  Sex: Male
  Weight: 104.31 kg

DRUGS (2)
  1. ENBREL [Suspect]
     Indication: PSORIASIS
     Dosage: UNK
     Route: 058
  2. PERCOCET                           /00446701/ [Concomitant]

REACTIONS (1)
  - Therapeutic response decreased [Unknown]
